FAERS Safety Report 8926343 (Version 1)
Quarter: 2012Q4

REPORT INFORMATION
  Report Type: 
  Country: US (occurrence: US)
  Receive Date: 20121127
  Receipt Date: 20121127
  Transmission Date: 20130627
  Serious: Yes (Hospitalization)
  Sender: FDA-Public Use
  Company Number: US-UCBSA-071284

PATIENT
  Sex: Male

DRUGS (2)
  1. VIMPAT [Suspect]
     Indication: CONVULSION
     Dosage: STRENGTH : 100 MG
  2. KEPPRA XR [Suspect]
     Indication: CONVULSION
     Dosage: STRENGTH : 750 MG

REACTIONS (2)
  - Skull fracture [Unknown]
  - Rib fracture [Unknown]
